FAERS Safety Report 9575265 (Version 1)
Quarter: 2013Q4

REPORT INFORMATION
  Report Type: Spontaneous
  Country: DE (occurrence: DE)
  Receive Date: 20131001
  Receipt Date: 20131001
  Transmission Date: 20140711
  Serious: Yes (Other)
  Sender: FDA-Public Use
  Company Number: DE-GLAXOSMITHKLINE-D0081105A

PATIENT
  Age: 54 Year
  Sex: Male

DRUGS (3)
  1. ARIXTRA [Suspect]
     Dosage: 2.5MG PER DAY
     Route: 058
  2. PRASUGREL [Concomitant]
     Route: 048
     Dates: start: 201304
  3. ASS [Concomitant]
     Route: 048
     Dates: start: 201304

REACTIONS (2)
  - Muscle haemorrhage [Unknown]
  - Oedema peripheral [Unknown]
